FAERS Safety Report 10034399 (Version 1)
Quarter: 2014Q1

REPORT INFORMATION
  Report Type: Spontaneous
  Country: US (occurrence: None)
  Receive Date: 20140324
  Receipt Date: 20140324
  Transmission Date: 20141002
  Serious: Yes (Disabling)
  Sender: FDA-Public Use
  Company Number: None

PATIENT
  Age: 54 Year
  Sex: Female

DRUGS (2)
  1. CIPROFLOXACIN HCL [Suspect]
     Indication: EAR INFECTION
     Dosage: ONE PILL, TWICE DAILY, TAKEN BY MOUTH?
     Route: 048
     Dates: start: 20120406, end: 20120409
  2. CIPRO HC [Suspect]
     Indication: EAR INFECTION
     Dosage: TWO DROPS, TWICE DAILY, INTO THE EAR
     Dates: start: 20120326, end: 20120330

REACTIONS (15)
  - Pruritus [None]
  - Diarrhoea [None]
  - Nervous system disorder [None]
  - Gait disturbance [None]
  - Speech disorder [None]
  - Tendon rupture [None]
  - Photosensitivity reaction [None]
  - Myalgia [None]
  - Rash erythematous [None]
  - Purpura [None]
  - Food allergy [None]
  - Neuropathy peripheral [None]
  - Balance disorder [None]
  - Coordination abnormal [None]
  - Mental impairment [None]
